FAERS Safety Report 7098285-9 (Version None)
Quarter: 2010Q4

REPORT INFORMATION
  Report Type: 
  Country: None (occurrence: None)
  Receive Date: 20101112
  Receipt Date: 20100909
  Transmission Date: 20110411
  Serious: No
  Sender: FDA-Public Use
  Company Number: A0877723A

PATIENT
  Age: 26 Year
  Sex: Female
  Weight: 64.5 kg

DRUGS (2)
  1. TREXIMET [Suspect]
     Indication: MIGRAINE
     Route: 048
  2. ORAL CONTRACEPTIVES [Concomitant]

REACTIONS (5)
  - FEELING HOT [None]
  - NECK PAIN [None]
  - NONSPECIFIC REACTION [None]
  - PARAESTHESIA [None]
  - SKIN BURNING SENSATION [None]
